FAERS Safety Report 9548408 (Version 1)
Quarter: 2013Q2

REPORT INFORMATION
  Report Type: Spontaneous
  Country: US (occurrence: None)
  Receive Date: 20130627
  Receipt Date: 20130627
  Transmission Date: 20140414
  Serious: No
  Sender: FDA-Public Use
  Company Number: 1000044986

PATIENT
  Age: 75 Year
  Sex: Male

DRUGS (5)
  1. LINZESS (LINACLOTIDE) [Suspect]
     Indication: CONSTIPATION
     Dates: start: 20130421, end: 201304
  2. LISINOPRIL [Concomitant]
  3. SOTALOL [Concomitant]
  4. OMEPRAZOLE [Concomitant]
  5. XARELTO (RIVAROXABAN) [Concomitant]

REACTIONS (1)
  - Diarrhoea [None]
